FAERS Safety Report 11906286 (Version 1)
Quarter: 2016Q1

REPORT INFORMATION
  Report Type: Spontaneous
  Country: US (occurrence: US)
  Receive Date: 20160111
  Receipt Date: 20160111
  Transmission Date: 20160526
  Serious: No
  Sender: FDA-Public Use
  Company Number: US-BAYER-2016-002716

PATIENT
  Age: 20 Year
  Sex: Female

DRUGS (1)
  1. MIRENA [Suspect]
     Active Substance: LEVONORGESTREL
     Indication: CONTRACEPTION
     Dosage: 20 MCG/24HR, CONT
     Route: 015
     Dates: start: 20151111

REACTIONS (10)
  - Loss of libido [None]
  - Anger [None]
  - Skin burning sensation [None]
  - Palpitations [None]
  - Depressed mood [None]
  - Pain of skin [None]
  - Anxiety [None]
  - Hostility [None]
  - General physical health deterioration [None]
  - Alopecia [None]
